FAERS Safety Report 8109410 (Version 3)
Quarter: 2017Q4

REPORT INFORMATION
  Report Type: Spontaneous
  Country: US (occurrence: US)
  Receive Date: 20110826
  Receipt Date: 20171009
  Transmission Date: 20180321
  Serious: Yes (Hospitalization)
  Sender: FDA-Public Use
  Company Number: US-BAYER-2011-077189

PATIENT
  Age: 29 Year
  Sex: Female
  Weight: 77 kg

DRUGS (2)
  1. YASMIN [Suspect]
     Active Substance: DROSPIRENONE\ETHINYL ESTRADIOL
     Indication: CONTRACEPTION
     Dosage: UNK
     Route: 048
     Dates: start: 20060823, end: 20080730
  2. YAZ [Suspect]
     Active Substance: DROSPIRENONE\ETHINYL ESTRADIOL
     Indication: CONTRACEPTION

REACTIONS (6)
  - Cor pulmonale [Recovering/Resolving]
  - Dyspnoea [Recovering/Resolving]
  - Injury [Recovering/Resolving]
  - Chest pain [Recovering/Resolving]
  - Deep vein thrombosis [None]
  - Pulmonary embolism [Recovering/Resolving]

NARRATIVE: CASE EVENT DATE: 20080730
